FAERS Safety Report 10741608 (Version 3)
Quarter: 2021Q1

REPORT INFORMATION
  Report Type: Spontaneous
  Country: US (occurrence: US)
  Receive Date: 20150127
  Receipt Date: 20210319
  Transmission Date: 20210419
  Serious: Yes (Other)
  Sender: FDA-Public Use
  Company Number: US-PFIZER INC-2015033164

PATIENT
  Age: 54 Year
  Sex: Male

DRUGS (1)
  1. PRISTIQ EXTENDED?RELEASE [Suspect]
     Active Substance: DESVENLAFAXINE SUCCINATE
     Dosage: UNK
     Dates: start: 2011

REACTIONS (5)
  - Craniocerebral injury [Unknown]
  - Stress [Unknown]
  - Anxiety [Unknown]
  - Road traffic accident [Unknown]
  - Aphasia [Unknown]

NARRATIVE: CASE EVENT DATE: 2013
